FAERS Safety Report 5191059-5 (Version None)
Quarter: 2006Q4

REPORT INFORMATION
  Report Type: 
  Country: None (occurrence: None)
  Receive Date: 20061226
  Receipt Date: 20060227
  Transmission Date: 20070319
  Serious: Yes (Hospitalization, Disabling, Other)
  Sender: FDA-Public Use
  Company Number: GB-BRISTOL-MYERS SQUIBB COMPANY-13296967

PATIENT
  Age: 31 Year
  Sex: Male

DRUGS (3)
  1. CISPLATIN [Suspect]
     Indication: TESTIS CANCER
     Route: 042
  2. ETOPOSIDE [Concomitant]
     Indication: TESTIS CANCER
     Route: 042
  3. BLEOMYCIN [Concomitant]
     Indication: TESTIS CANCER

REACTIONS (4)
  - BLINDNESS [None]
  - RETINAL ISCHAEMIA [None]
  - RETINAL NEOVASCULARISATION [None]
  - SCOTOMA [None]
